FAERS Safety Report 18583563 (Version 1)
Quarter: 2020Q4

REPORT INFORMATION
  Report Type: Spontaneous
  Country: DE (occurrence: DE)
  Receive Date: 20201207
  Receipt Date: 20201207
  Transmission Date: 20210114
  Serious: Yes (Other)
  Sender: FDA-Public Use
  Company Number: DE-ABBVIE-20K-062-3674439-00

PATIENT
  Sex: Female

DRUGS (2)
  1. PROLIA [Suspect]
     Active Substance: DENOSUMAB
     Indication: PRODUCT USED FOR UNKNOWN INDICATION
     Dosage: UNIT= PREFILLED SYRINGE
     Route: 065
     Dates: start: 2020
  2. ADALIMUMAB [Suspect]
     Active Substance: ADALIMUMAB
     Indication: PSORIATIC ARTHROPATHY
     Dosage: UNIT=NOT AVAILABLE
     Route: 058

REACTIONS (8)
  - Erythema [Not Recovered/Not Resolved]
  - Nasal inflammation [Unknown]
  - Infection [Unknown]
  - Peripheral swelling [Not Recovered/Not Resolved]
  - Exostosis [Unknown]
  - Eczema eyelids [Unknown]
  - Pain in extremity [Not Recovered/Not Resolved]
  - Osteitis [Not Recovered/Not Resolved]

NARRATIVE: CASE EVENT DATE: 2020
